FAERS Safety Report 9925230 (Version 1)
Quarter: 2014Q1

REPORT INFORMATION
  Report Type: Spontaneous
  Country: US (occurrence: US)
  Receive Date: 20140226
  Receipt Date: 20140226
  Transmission Date: 20141002
  Serious: Yes (Hospitalization)
  Sender: FDA-Public Use
  Company Number: US-BRACCO-009695

PATIENT
  Age: 65 Year
  Sex: Female
  Weight: 122 kg

DRUGS (24)
  1. INSULIN [Concomitant]
  2. FUROSEMIDE [Concomitant]
     Dates: end: 20110803
  3. GLYBURIDE [Concomitant]
     Dates: end: 20110803
  4. METOPROLOL [Concomitant]
  5. HUMALOG [Concomitant]
  6. POTASSIUM CHLORIDE [Concomitant]
  7. LABETALOL [Concomitant]
     Dates: start: 20110804
  8. ASPIRIN [Concomitant]
     Dosage: PRIOR TO RANDOMIZATION
     Dates: start: 20110804, end: 20110804
  9. HEPARIN [Concomitant]
     Dates: start: 20110804, end: 20110804
  10. CLOPIDOGREL [Concomitant]
     Dosage: POST PROCEDURE
     Dates: start: 20110804, end: 20110804
  11. CLOPIDOGREL [Concomitant]
     Dosage: ON DISCHARGE
     Dates: start: 20110809, end: 20110809
  12. LOPRESSOR [Concomitant]
     Dates: start: 20110804, end: 20110804
  13. LISINOPRIL [Concomitant]
     Dates: end: 20110803
  14. DILAUDID [Concomitant]
     Dates: start: 20110804, end: 20110804
  15. NITROGLYCERIN [Concomitant]
     Dates: start: 20110804, end: 20110804
  16. HEPARIN [Concomitant]
     Dates: start: 20110803, end: 20110804
  17. HYDRALAZINE [Concomitant]
     Dates: start: 20110803, end: 20110809
  18. ASPIRIN [Concomitant]
     Dosage: AT DISCHARGE AT 15:54
     Dates: start: 20110809, end: 20110809
  19. ZOFRAN [Concomitant]
     Dates: start: 20110804, end: 20110804
  20. ISOVUE [Suspect]
     Indication: ANGIOGRAM
     Route: 013
     Dates: start: 20110804, end: 20110804
  21. ALL OTHER THERAPEUTIC PRODUCTS [Suspect]
     Indication: PERCUTANEOUS CORONARY INTERVENTION
     Dosage: LOADING DOSE OF 4 CAPSULES AT 11:58
     Route: 048
     Dates: start: 20110804, end: 20110804
  22. ALL OTHER THERAPEUTIC PRODUCTS [Suspect]
     Indication: PERCUTANEOUS CORONARY INTERVENTION
     Dosage: AT 15:03, 4 CAPSULES POST INFUSION
     Route: 048
     Dates: start: 20110804, end: 20110804
  23. ALL OTHER THERAPEUTIC PRODUCTS [Suspect]
     Indication: PERCUTANEOUS CORONARY INTERVENTION
     Dosage: AT 11:39
     Route: 040
     Dates: start: 20110804, end: 20110804
  24. ALL OTHER THERAPEUTIC PRODUCTS [Suspect]
     Indication: PERCUTANEOUS CORONARY INTERVENTION
     Dosage: 73.2 ML/HR FROM 11:40 TO 15:00
     Route: 042
     Dates: start: 20110804, end: 20110804

REACTIONS (2)
  - Nephropathy toxic [Recovered/Resolved]
  - Anaemia [Recovered/Resolved]
